FAERS Safety Report 6158572-5 (Version None)
Quarter: 2009Q2

REPORT INFORMATION
  Report Type: 
  Country: None (occurrence: None)
  Receive Date: 20090417
  Receipt Date: 20090408
  Transmission Date: 20091009
  Serious: Yes (Life-Threatening, Other)
  Sender: FDA-Public Use
  Company Number: FI-ELI_LILLY_AND_COMPANY-FI200904001882

PATIENT
  Age: 39 Year
  Sex: Female

DRUGS (2)
  1. CYMBALTA [Suspect]
     Indication: NEURALGIA
     Dosage: 1 D/F, UNK
  2. CYMBALTA [Suspect]
     Dosage: 120 MG, UNK
     Route: 048

REACTIONS (3)
  - ADVERSE EVENT [None]
  - CARDIAC ARREST [None]
  - DRUG WITHDRAWAL SYNDROME [None]
